FAERS Safety Report 4548642-7 (Version None)
Quarter: 2004Q4

REPORT INFORMATION
  Report Type: 
  Country: None (occurrence: None)
  Receive Date: 20041227
  Receipt Date: 20040913
  Transmission Date: 20050328
  Serious: No
  Sender: FDA-Public Use
  Company Number: 04P-163-0273129-00

PATIENT
  Age: 59 Year
  Sex: Female

DRUGS (8)
  1. HUMIRA [Suspect]
     Indication: RHEUMATOID ARTHRITIS
     Dosage: 40 MG, 1 IN 2 WK, SUBCUTANEOUS
     Route: 058
     Dates: start: 20040817
  2. METHOTREXATE [Concomitant]
  3. PREDNISONE [Concomitant]
  4. ACTOSE [Concomitant]
  5. THYROID TAB [Concomitant]
  6. FOLIC ACID [Concomitant]
  7. VERAPAMIL [Concomitant]
  8. FEXOFENADINE HYDROCHLORIDE [Concomitant]

REACTIONS (4)
  - FATIGUE [None]
  - GASTROENTERITIS VIRAL [None]
  - RED BLOOD CELL COUNT DECREASED [None]
  - WHITE BLOOD CELL COUNT INCREASED [None]
